FAERS Safety Report 4365329-4 (Version None)
Quarter: 2004Q2

REPORT INFORMATION
  Report Type: 
  Country: None (occurrence: None)
  Receive Date: 20040521
  Receipt Date: 20040504
  Transmission Date: 20050107
  Serious: Yes (Disabling, Other)
  Sender: FDA-Public Use
  Company Number: USA040566620

PATIENT
  Age: 41 Year
  Sex: Male
  Weight: 85 kg

DRUGS (1)
  1. HUMULIN N [Suspect]
     Indication: DIABETES MELLITUS
     Dosage: 17 U/1 DAY
     Dates: start: 19910101, end: 20030201

REACTIONS (9)
  - BLINDNESS [None]
  - CARDIAC DISORDER [None]
  - CATARACT [None]
  - DIABETIC RETINOPATHY [None]
  - DIALYSIS [None]
  - DRUG EFFECT DECREASED [None]
  - MEMORY IMPAIRMENT [None]
  - RENAL FAILURE [None]
  - WEIGHT FLUCTUATION [None]
